FAERS Safety Report 17580390 (Version 2)
Quarter: 2020Q1

REPORT INFORMATION
  Report Type: Report from Study
  Country: None (occurrence: US)
  Receive Date: 20200325
  Receipt Date: 20200326
  Transmission Date: 20200409
  Serious: Yes (Hospitalization, Other)
  Sender: FDA-Public Use
  Company Number: US-ABBVIE-20K-163-3333266-00

PATIENT
  Age: 49 Year
  Sex: Male
  Weight: 75.82 kg

DRUGS (1)
  1. HUMIRA [Suspect]
     Active Substance: ADALIMUMAB
     Indication: ANKYLOSING SPONDYLITIS
     Route: 058
     Dates: start: 2018, end: 20200219

REACTIONS (6)
  - Renal failure [Recovering/Resolving]
  - Large intestinal obstruction [Recovering/Resolving]
  - Weight decreased [Not Recovered/Not Resolved]
  - Small intestine carcinoma [Recovering/Resolving]
  - Hepatic cancer [Recovered/Resolved]
  - Pyrexia [Recovered/Resolved]

NARRATIVE: CASE EVENT DATE: 202002
